FAERS Safety Report 13076739 (Version 1)
Quarter: 2016Q4

REPORT INFORMATION
  Report Type: Spontaneous
  Country: US (occurrence: US)
  Receive Date: 20161230
  Receipt Date: 20161230
  Transmission Date: 20170207
  Serious: Yes (Hospitalization, Other)
  Sender: FDA-Public Use
  Company Number: US-SHIRE-US201619929

PATIENT
  Age: 27 Year
  Sex: Female
  Weight: 57.6 kg

DRUGS (3)
  1. IRON [Concomitant]
     Active Substance: IRON
     Indication: NUTRITIONAL SUPPLEMENTATION
     Dosage: UNK, 2X/DAY:BID
     Route: 065
     Dates: start: 2009
  2. LIALDA [Suspect]
     Active Substance: MESALAMINE
     Dosage: 4.8 G, 1X/DAY:QD
     Route: 048
  3. LIALDA [Suspect]
     Active Substance: MESALAMINE
     Indication: CROHN^S DISEASE
     Dosage: 2.4 G, 1X/DAY:QD
     Route: 048
     Dates: start: 2009

REACTIONS (4)
  - Crohn^s disease [Recovered/Resolved]
  - Drug dose omission [Not Recovered/Not Resolved]
  - Product use issue [Not Recovered/Not Resolved]
  - Product quality issue [Unknown]

NARRATIVE: CASE EVENT DATE: 2009
